APPROVED DRUG PRODUCT: CYCLOSPORINE
Active Ingredient: CYCLOSPORINE
Strength: 50MG/ML
Dosage Form/Route: INJECTABLE;INJECTION
Application: A065151 | Product #001 | TE Code: AP
Applicant: PADAGIS US LLC
Approved: Oct 7, 2003 | RLD: No | RS: No | Type: RX